FAERS Safety Report 9819544 (Version 3)
Quarter: 2014Q2

REPORT INFORMATION
  Report Type: Not Available
  Country: GB (occurrence: GB)
  Receive Date: 20140115
  Receipt Date: 20140527
  Transmission Date: 20141212
  Serious: Yes (Death, Other)
  Sender: FDA-Public Use
  Company Number: GB-PURDUE-GBR-2014-0016871

PATIENT
  Age: 33 Year
  Sex: Female

DRUGS (7)
  1. MORPHINE SULFATE [Suspect]
     Indication: PRODUCT USED FOR UNKNOWN INDICATION
     Route: 065
  2. DUROGESIC DTRANS [Suspect]
     Indication: PRODUCT USED FOR UNKNOWN INDICATION
     Dosage: 50 MCG, Q1H
     Route: 062
  3. QUETIAPINE [Concomitant]
  4. DULOXETINE [Concomitant]
  5. HYOSCINE [Concomitant]
  6. CLONAZEPAM [Concomitant]
  7. DIHYDROCODEINE BITARTRATE [Concomitant]

REACTIONS (4)
  - Toxicity to various agents [Fatal]
  - Drug abuse [Unknown]
  - Drug diversion [Unknown]
  - Pulmonary oedema [Not Recovered/Not Resolved]
